FAERS Safety Report 17477112 (Version 3)
Quarter: 2020Q2

REPORT INFORMATION
  Report Type: Report from Study
  Country: CA (occurrence: CA)
  Receive Date: 20200228
  Receipt Date: 20200403
  Transmission Date: 20200713
  Serious: Yes (Hospitalization, Other)
  Sender: FDA-Public Use
  Company Number: CA-JNJFOC-20191037024

PATIENT
  Age: 49 Year
  Sex: Female
  Weight: 107.05 kg

DRUGS (2)
  1. STELARA [Suspect]
     Active Substance: USTEKINUMAB
     Route: 058
  2. STELARA [Suspect]
     Active Substance: USTEKINUMAB
     Indication: CROHN^S DISEASE
     Route: 042

REACTIONS (10)
  - Therapeutic product effect decreased [Unknown]
  - Off label use [Unknown]
  - Crohn^s disease [Recovered/Resolved]
  - Pain [Unknown]
  - Diarrhoea [Unknown]
  - Product use issue [Unknown]
  - Intestinal obstruction [Recovered/Resolved]
  - Gastric disorder [Unknown]
  - Sinusitis [Recovered/Resolved]
  - Nasal congestion [Unknown]

NARRATIVE: CASE EVENT DATE: 2019
